FAERS Safety Report 14379454 (Version 6)
Quarter: 2018Q2

REPORT INFORMATION
  Report Type: Spontaneous
  Country: DE (occurrence: DE)
  Receive Date: 20180112
  Receipt Date: 20180410
  Transmission Date: 20180711
  Serious: Yes (Hospitalization, Other)
  Sender: FDA-Public Use
  Company Number: DE-ALVOGEN-2018-ALVOGEN-094791

PATIENT
  Age: 78 Year
  Sex: Female

DRUGS (39)
  1. DUROGESIC [Interacting]
     Active Substance: FENTANYL
     Indication: PRODUCT USED FOR UNKNOWN INDICATION
     Dosage: DAILY DOSE: 75 MCG MICROGRAM(S) EVERY 3 DAY
     Route: 065
     Dates: start: 2012
  2. TETRYZOLINE HYDROCHLORIDE [Concomitant]
     Active Substance: TETRAHYDROZOLINE HYDROCHLORIDE
     Indication: PRODUCT USED FOR UNKNOWN INDICATION
     Dosage: UNK 2X1 SINCE WEEKS, 1DF
  3. PREDNISOLONE. [Concomitant]
     Active Substance: PREDNISOLONE
     Indication: PRODUCT USED FOR UNKNOWN INDICATION
     Dosage: DOSAGE FORM: UNSPECIFIED, 60 MG
     Route: 048
     Dates: start: 20140528
  4. MACROGOL [Concomitant]
     Active Substance: POLYETHYLENE GLYCOLS
     Indication: PRODUCT USED FOR UNKNOWN INDICATION
     Dosage: DAILY DOSE: 1 DF DOSAGE FORM EVERY DAY
     Route: 048
     Dates: start: 2011
  5. VENLAFAXINE [Concomitant]
     Active Substance: VENLAFAXINE HYDROCHLORIDE
     Indication: PRODUCT USED FOR UNKNOWN INDICATION
     Dosage: 30.0MG UNKNOWN
     Route: 048
     Dates: start: 20120101
  6. METAMIZOLE [Interacting]
     Active Substance: METAMIZOLE
     Indication: PRODUCT USED FOR UNKNOWN INDICATION
     Route: 048
     Dates: start: 20140522, end: 20140522
  7. METAMIZOLE [Interacting]
     Active Substance: METAMIZOLE
     Indication: PRODUCT USED FOR UNKNOWN INDICATION
     Dosage: 1500.0MG UNKNOWN
     Route: 048
  8. LISINOPRIL. [Interacting]
     Active Substance: LISINOPRIL
     Indication: PRODUCT USED FOR UNKNOWN INDICATION
     Dosage: 2.5MG UNKNOWN
     Route: 048
     Dates: start: 20140524
  9. PIPAMPERONE [Interacting]
     Active Substance: PIPAMPERONE
     Indication: PRODUCT USED FOR UNKNOWN INDICATION
     Route: 048
     Dates: start: 20140508, end: 20140509
  10. MIRTAZAPINE. [Interacting]
     Active Substance: MIRTAZAPINE
     Indication: PRODUCT USED FOR UNKNOWN INDICATION
     Dosage: 30.0MG UNKNOWN
     Route: 048
  11. DIAZEPAM. [Suspect]
     Active Substance: DIAZEPAM
     Indication: RESTLESSNESS
     Dosage: 10 MG, DOSAGE FORM: UNSPECIFIED, SINCE YEARS
     Route: 048
     Dates: start: 20140526, end: 20140528
  12. FOLIC ACID. [Concomitant]
     Active Substance: FOLIC ACID
     Indication: PRODUCT USED FOR UNKNOWN INDICATION
     Dosage: DAILY DOSE: 5 MG MILLIGRAM(S) EVERY DAY
     Route: 048
     Dates: start: 20140502
  13. AMLODIPINE [Concomitant]
     Active Substance: AMLODIPINE BESYLATE
     Indication: PRODUCT USED FOR UNKNOWN INDICATION
     Dosage: DAILY DOSE: 10 MG MILLIGRAM(S) EVERY DAY
     Route: 048
     Dates: start: 2011
  14. PANTOPRAZOLE [Concomitant]
     Active Substance: PANTOPRAZOLE
     Indication: PRODUCT USED FOR UNKNOWN INDICATION
     Dosage: DAILY DOSE: 40 MG MILLIGRAM(S) EVERY DAY
     Route: 048
  15. METAMIZOLE [Interacting]
     Active Substance: METAMIZOLE
     Indication: PRODUCT USED FOR UNKNOWN INDICATION
     Route: 048
     Dates: start: 20140523, end: 20140525
  16. METAMIZOLE [Interacting]
     Active Substance: METAMIZOLE
     Indication: PRODUCT USED FOR UNKNOWN INDICATION
     Route: 048
     Dates: start: 20140526, end: 20140528
  17. METAMIZOLE [Interacting]
     Active Substance: METAMIZOLE
     Indication: PRODUCT USED FOR UNKNOWN INDICATION
     Route: 048
     Dates: start: 20140518, end: 20140519
  18. ABILIFY [Interacting]
     Active Substance: ARIPIPRAZOLE
     Indication: PRODUCT USED FOR UNKNOWN INDICATION
     Dosage: 5.0MG UNKNOWN
     Route: 048
     Dates: start: 20140515, end: 20140520
  19. METAMIZOLE [Interacting]
     Active Substance: METAMIZOLE
     Indication: PRODUCT USED FOR UNKNOWN INDICATION
     Dosage: DOSAGE FORM: UNSPECIFIED, 500-1000 MG
     Route: 048
     Dates: start: 20140502, end: 20140516
  20. METAMIZOLE [Interacting]
     Active Substance: METAMIZOLE
     Indication: PRODUCT USED FOR UNKNOWN INDICATION
     Route: 048
     Dates: start: 20140530
  21. LISINOPRIL. [Suspect]
     Active Substance: LISINOPRIL
     Indication: PRODUCT USED FOR UNKNOWN INDICATION
     Dosage: 5.0MG UNKNOWN
     Route: 048
     Dates: start: 20140520, end: 20140520
  22. SODIUM POLYSTYRENE SULFONATE. [Concomitant]
     Active Substance: SODIUM POLYSTYRENE SULFONATE
     Indication: PRODUCT USED FOR UNKNOWN INDICATION
     Dosage: DOSAGE FORM: UNSPECIFIED, 2 TABLE SPOON
     Route: 048
     Dates: start: 20140528
  23. PIPAMPERONE [Interacting]
     Active Substance: PIPAMPERONE
     Indication: PRODUCT USED FOR UNKNOWN INDICATION
     Route: 048
     Dates: start: 20140527, end: 20140527
  24. METAMIZOLE [Interacting]
     Active Substance: METAMIZOLE
     Indication: PRODUCT USED FOR UNKNOWN INDICATION
     Route: 048
     Dates: start: 20140526, end: 20140528
  25. PIPAMPERONE [Interacting]
     Active Substance: PIPAMPERONE
     Indication: PRODUCT USED FOR UNKNOWN INDICATION
     Route: 048
     Dates: start: 20140510, end: 20140513
  26. PIPAMPERONE [Interacting]
     Active Substance: PIPAMPERONE
     Indication: PRODUCT USED FOR UNKNOWN INDICATION
     Route: 048
     Dates: start: 20140525, end: 20140526
  27. METAMIZOLE [Interacting]
     Active Substance: METAMIZOLE
     Indication: PRODUCT USED FOR UNKNOWN INDICATION
     Route: 048
     Dates: start: 20140518, end: 20140519
  28. DIAZEPAM. [Suspect]
     Active Substance: DIAZEPAM
     Indication: RESTLESSNESS
     Dosage: 10 MG, DOSAGE FORM: UNSPECIFIED, SINCE YEARS
     Route: 048
     Dates: start: 20140526, end: 20140528
  29. PIPAMPERONE [Interacting]
     Active Substance: PIPAMPERONE
     Indication: PRODUCT USED FOR UNKNOWN INDICATION
     Route: 048
     Dates: start: 20140528, end: 20140528
  30. METAMIZOLE [Interacting]
     Active Substance: METAMIZOLE
     Indication: PRODUCT USED FOR UNKNOWN INDICATION
     Route: 048
     Dates: start: 20140520, end: 20140521
  31. STILNOX [Suspect]
     Active Substance: ZOLPIDEM TARTRATE
     Indication: PRODUCT USED FOR UNKNOWN INDICATION
     Route: 048
     Dates: start: 20140527
  32. SIMVASTATIN. [Concomitant]
     Active Substance: SIMVASTATIN
     Indication: PRODUCT USED FOR UNKNOWN INDICATION
     Dosage: DAILY DOSE: 10 MG MILLIGRAM(S) EVERY DAY
     Route: 048
     Dates: start: 20140201
  33. INSULIN [Concomitant]
     Active Substance: INSULIN NOS
     Indication: PRODUCT USED FOR UNKNOWN INDICATION
     Dosage: DAILY DOSE: 60 IU INTERNATIONAL UNIT(S) EVERY DAY
     Route: 058
  34. ANTAZOLINE HYDROCHLORIDE/NAPHAZOLINE HYDROCHLORIDE/OXEDRINE TARTRATE [Concomitant]
     Indication: PRODUCT USED FOR UNKNOWN INDICATION
     Dosage: UNK 2X1 SINCE WEEKS, 1DF
  35. METAMIZOLE [Interacting]
     Active Substance: METAMIZOLE
     Indication: PRODUCT USED FOR UNKNOWN INDICATION
     Dosage: 1500 MG, DOSAGE FORM: UNSPECIFIED, 500-1000 MG
     Route: 048
     Dates: start: 20140517, end: 20140517
  36. PIPAMPERONE [Interacting]
     Active Substance: PIPAMPERONE
     Indication: PRODUCT USED FOR UNKNOWN INDICATION
     Route: 048
     Dates: start: 20140515, end: 20140524
  37. ABILIFY [Interacting]
     Active Substance: ARIPIPRAZOLE
     Indication: PRODUCT USED FOR UNKNOWN INDICATION
     Dosage: 2.5MG UNKNOWN
     Route: 048
     Dates: start: 20140508, end: 20140514
  38. FORMOTEROL FUMARATE [Concomitant]
     Active Substance: FORMOTEROL FUMARATE
     Indication: PRODUCT USED FOR UNKNOWN INDICATION
     Dosage: DAILY DOSE: 1 DF DOSAGE FORM EVERY DAY
     Dates: start: 201312
  39. CLOPIDOGREL [Concomitant]
     Active Substance: CLOPIDOGREL BISULFATE
     Indication: PRODUCT USED FOR UNKNOWN INDICATION
     Dosage: DAILY DOSE: 75 MG MILLIGRAM(S) EVERY DAY
     Route: 048
     Dates: start: 2011

REACTIONS (14)
  - Diarrhoea [Unknown]
  - Dysarthria [Unknown]
  - Left ventricular hypertrophy [Unknown]
  - Syncope [Recovered/Resolved]
  - Loss of consciousness [Recovered/Resolved]
  - Fall [Unknown]
  - Pancytopenia [Recovered/Resolved]
  - Myoclonus [Unknown]
  - Restlessness [Unknown]
  - Rash [Unknown]
  - Drug interaction [Unknown]
  - Facial nerve disorder [Unknown]
  - Hypokalaemia [Unknown]
  - Prescribed underdose [Unknown]

NARRATIVE: CASE EVENT DATE: 20140519
